FAERS Safety Report 4839179-6 (Version None)
Quarter: 2005Q4

REPORT INFORMATION
  Report Type: 
  Country: None (occurrence: None)
  Receive Date: 20051031
  Receipt Date: 20050811
  Transmission Date: 20060501
  Serious: No
  Sender: FDA-Public Use
  Company Number: 200514732US

PATIENT
  Age: 31 Year
  Sex: Female
  Weight: 69.5 kg

DRUGS (1)
  1. KETEK [Suspect]
     Indication: OTITIS MEDIA
     Dosage: 800 MG QD PO
     Route: 048
     Dates: start: 20050521, end: 20050524

REACTIONS (1)
  - MANIA [None]
